FAERS Safety Report 7096683-0 (Version None)
Quarter: 2010Q4

REPORT INFORMATION
  Report Type: 
  Country: None (occurrence: None)
  Receive Date: 20101111
  Receipt Date: 20101013
  Transmission Date: 20110411
  Serious: Yes (Hospitalization)
  Sender: FDA-Public Use
  Company Number: US-BAYER-201026580NA

PATIENT
  Age: 29 Year
  Sex: Female
  Weight: 91 kg

DRUGS (4)
  1. YASMIN [Suspect]
     Indication: ORAL CONTRACEPTION
     Route: 048
     Dates: start: 20070101, end: 20070401
  2. HYDROCODONE BITARTRATE + ACETAMINOPHEN [Concomitant]
     Dosage: 5-500 TAB
     Dates: start: 20070312
  3. PROMETHAZINE [Concomitant]
     Dates: start: 20070312
  4. NITROFURANTOIN [Concomitant]
     Dates: start: 20070312

REACTIONS (1)
  - THROMBOSIS [None]
